FAERS Safety Report 19268578 (Version 1)
Quarter: 2021Q2

REPORT INFORMATION
  Report Type: Spontaneous
  Country: US (occurrence: US)
  Receive Date: 20210518
  Receipt Date: 20210518
  Transmission Date: 20210717
  Serious: Yes (Other)
  Sender: FDA-Public Use
  Company Number: US-SA-2021SA161059

PATIENT
  Age: 69 Year
  Sex: Male

DRUGS (2)
  1. ZANTAC [Suspect]
     Active Substance: RANITIDINE HYDROCHLORIDE
     Indication: GASTROOESOPHAGEAL REFLUX DISEASE
     Dosage: 150 MG
     Dates: start: 198607, end: 201002
  2. ZANTAC [Suspect]
     Active Substance: RANITIDINE HYDROCHLORIDE
     Indication: DYSPEPSIA

REACTIONS (5)
  - Prostate cancer [Unknown]
  - Lung neoplasm malignant [Unknown]
  - Renal cancer [Unknown]
  - Colorectal cancer [Unknown]
  - Bladder cancer stage IV [Recovering/Resolving]

NARRATIVE: CASE EVENT DATE: 20160201
